FAERS Safety Report 5075187-0 (Version None)
Quarter: 2006Q3

REPORT INFORMATION
  Report Type: 
  Country: None (occurrence: None)
  Receive Date: 20060809
  Receipt Date: 20050822
  Transmission Date: 20061208
  Serious: No
  Sender: FDA-Public Use
  Company Number: US-AMGEN-US147411

PATIENT
  Age: 41 Year
  Sex: Male
  Weight: 47.2 kg

DRUGS (10)
  1. EPOGEN [Suspect]
     Indication: RENAL FAILURE CHRONIC
     Route: 058
     Dates: start: 20050815, end: 20050921
  2. HECTORAL [Concomitant]
     Route: 065
  3. FERROUS SULFATE TAB [Concomitant]
     Route: 065
  4. CLONIDINE [Concomitant]
     Route: 065
  5. HYDRALAZINE HYDROCHLORIDE [Concomitant]
     Route: 065
  6. PERCOCET [Concomitant]
     Route: 065
  7. CLONACEPAM [Concomitant]
     Route: 065
  8. CALCIUM CARBONATE [Concomitant]
     Route: 065
  9. BENADRYL [Concomitant]
     Route: 065
  10. ACETAMINOPHEN [Concomitant]
     Route: 065

REACTIONS (5)
  - BACK PAIN [None]
  - CHEST PAIN [None]
  - CONDITION AGGRAVATED [None]
  - MYALGIA [None]
  - NAUSEA [None]
